FAERS Safety Report 6199308-1 (Version None)
Quarter: 2009Q2

REPORT INFORMATION
  Report Type: 
  Country: None (occurrence: None)
  Receive Date: 20090519
  Receipt Date: 20090508
  Transmission Date: 20091009
  Serious: Yes (Death, Hospitalization)
  Sender: FDA-Public Use
  Company Number: 2008AL011373

PATIENT
  Age: 60 Year
  Sex: Female

DRUGS (16)
  1. DIGOXIN [Suspect]
     Dosage: 0.25MG, DAILY, PO
     Route: 048
     Dates: start: 19940101, end: 20070101
  2. GLYBURIDE [Concomitant]
  3. SYNTHROID [Concomitant]
  4. HUMULIN N [Concomitant]
  5. FELDENE [Concomitant]
  6. RELAFEN [Concomitant]
  7. NORTRIPTYLINE HCL [Concomitant]
  8. LORTAB [Concomitant]
  9. METHYLDOPA [Concomitant]
  10. LASIX [Concomitant]
  11. PAMELOR [Concomitant]
  12. FENTANYL [Concomitant]
  13. BUSPAR [Concomitant]
  14. ZYPREXA [Concomitant]
  15. ACTOS [Concomitant]
  16. SEROQUEL [Concomitant]

REACTIONS (20)
  - ANXIETY [None]
  - ARTHRALGIA [None]
  - BACK PAIN [None]
  - BLOOD GLUCOSE INCREASED [None]
  - BRONCHIAL SECRETION RETENTION [None]
  - DIALYSIS [None]
  - DYSPNOEA EXERTIONAL [None]
  - ECONOMIC PROBLEM [None]
  - EMOTIONAL DISTRESS [None]
  - MOVEMENT DISORDER [None]
  - MULTIPLE INJURIES [None]
  - NERVOUSNESS [None]
  - PAIN [None]
  - PAIN IN JAW [None]
  - PANIC ATTACK [None]
  - REFUSAL OF TREATMENT BY PATIENT [None]
  - RENAL FAILURE [None]
  - RESPIRATORY ARREST [None]
  - THERAPEUTIC AGENT TOXICITY [None]
  - UNEVALUABLE EVENT [None]
